FAERS Safety Report 18506746 (Version 1)
Quarter: 2020Q4

REPORT INFORMATION
  Report Type: Spontaneous
  Country: JP (occurrence: JP)
  Receive Date: 20201116
  Receipt Date: 20201116
  Transmission Date: 20210114
  Serious: Yes (Hospitalization)
  Sender: FDA-Public Use
  Company Number: JP-FERRINGPH-2020FE07772

PATIENT
  Age: 38 Year
  Sex: Female

DRUGS (5)
  1. HYPEN [ETODOLAC] [Concomitant]
     Active Substance: ETODOLAC
  2. RINDERON [BETAMETHASONE SODIUM PHOSPHATE] [Concomitant]
     Active Substance: BETAMETHASONE SODIUM PHOSPHATE
     Indication: URTICARIA
     Dosage: UNK
     Route: 003
     Dates: start: 20201019
  3. HMG FERRING [Suspect]
     Active Substance: MENOTROPINS
     Indication: CONTROLLED OVARIAN STIMULATION
     Dosage: 150 IU, ONCE/SINGLE
     Route: 065
     Dates: start: 20201009
  4. HCG [Suspect]
     Active Substance: GONADOTROPHIN, CHORIONIC
     Indication: CONTROLLED OVARIAN STIMULATION
     Dosage: 500 IU, ONCE/SINGLE
     Route: 065
     Dates: start: 20201013
  5. RINLAXER [Concomitant]
     Active Substance: CHLORPHENESIN CARBAMATE

REACTIONS (3)
  - Urticarial vasculitis [Recovering/Resolving]
  - Urticaria [Recovering/Resolving]
  - Drug eruption [Recovering/Resolving]

NARRATIVE: CASE EVENT DATE: 20201015
